FAERS Safety Report 4859255-1 (Version None)
Quarter: 2005Q4

REPORT INFORMATION
  Report Type: 
  Country: None (occurrence: None)
  Receive Date: 20051219
  Receipt Date: 20041108
  Transmission Date: 20060501
  Serious: No
  Sender: FDA-Public Use
  Company Number: US-GLAXOSMITHKLINE-A0532975A

PATIENT

DRUGS (3)
  1. NICODERM CQ [Suspect]
     Dates: start: 20041014, end: 20041021
  2. NICODERM CQ [Suspect]
     Dates: start: 20041024
  3. WELLBUTRIN [Concomitant]

REACTIONS (4)
  - INSOMNIA [None]
  - NERVOUSNESS [None]
  - NIGHTMARE [None]
  - SNORING [None]
